FAERS Safety Report 14325860 (Version 1)
Quarter: 2017Q4

REPORT INFORMATION
  Report Type: Spontaneous
  Country: AU (occurrence: AU)
  Receive Date: 20171226
  Receipt Date: 20171226
  Transmission Date: 20180321
  Serious: Yes (Hospitalization, Other)
  Sender: FDA-Public Use
  Company Number: AU-ALLERGAN-1772774US

PATIENT
  Age: 66 Year
  Sex: Male

DRUGS (5)
  1. CANDESARTAN. [Concomitant]
     Active Substance: CANDESARTAN
     Indication: HYPERTENSION
     Route: 065
  2. HYDROCHLOROTHIAZIDE UNK [Suspect]
     Active Substance: HYDROCHLOROTHIAZIDE
     Indication: HYPERTENSION
     Dosage: UNK
     Route: 065
  3. HYDROCHLOROTHIAZIDE UNK [Suspect]
     Active Substance: HYDROCHLOROTHIAZIDE
     Dosage: 25 MG, UNK
     Route: 065
  4. LITHIUM. [Suspect]
     Active Substance: LITHIUM
     Indication: BIPOLAR I DISORDER
     Dosage: UNK
     Route: 065
  5. AMLODIPINE [Concomitant]
     Active Substance: AMLODIPINE BESYLATE
     Indication: HYPERTENSION
     Route: 065

REACTIONS (7)
  - Dehydration [Unknown]
  - Mania [Recovered/Resolved]
  - Acute kidney injury [Unknown]
  - Blood creatine phosphokinase increased [Unknown]
  - Toxicity to various agents [Unknown]
  - Psychomotor hyperactivity [Unknown]
  - Catatonia [Recovered/Resolved]
